FAERS Safety Report 13681645 (Version 1)
Quarter: 2017Q2

REPORT INFORMATION
  Report Type: Spontaneous
  Country: US (occurrence: US)
  Receive Date: 20170622
  Receipt Date: 20170622
  Transmission Date: 20170830
  Serious: Yes (Disabling)
  Sender: FDA-Public Use
  Company Number: None

PATIENT
  Age: 48 Year
  Sex: Female
  Weight: 69.75 kg

DRUGS (2)
  1. CLONAZEPAM. [Suspect]
     Active Substance: CLONAZEPAM
     Indication: INSOMNIA
     Dosage: ?          QUANTITY:1 TABLET(S);?
     Route: 048
  2. CLONAZEPAM. [Suspect]
     Active Substance: CLONAZEPAM
     Indication: ANXIETY
     Dosage: ?          QUANTITY:1 TABLET(S);?
     Route: 048

REACTIONS (21)
  - Anxiety [None]
  - Panic attack [None]
  - Lethargy [None]
  - Depression [None]
  - Insomnia [None]
  - Agitation [None]
  - Tinnitus [None]
  - Anger [None]
  - Cognitive disorder [None]
  - Withdrawal syndrome [None]
  - Restless legs syndrome [None]
  - Chest pain [None]
  - Alopecia [None]
  - Pain [None]
  - Mood swings [None]
  - Restlessness [None]
  - Suicidal ideation [None]
  - Memory impairment [None]
  - Palpitations [None]
  - Paranoia [None]
  - Dizziness [None]

NARRATIVE: CASE EVENT DATE: 20161118
